FAERS Safety Report 7318950-5 (Version None)
Quarter: 2011Q1

REPORT INFORMATION
  Report Type: 
  Country: None (occurrence: None)
  Receive Date: 20110228
  Receipt Date: 20110216
  Transmission Date: 20110831
  Serious: Yes (Other)
  Sender: FDA-Public Use
  Company Number: GB-JNJFOC-20101204334

PATIENT
  Sex: Female
  Weight: 101 kg

DRUGS (4)
  1. REMICADE [Suspect]
     Indication: CROHN'S DISEASE
     Route: 042
  2. REMICADE [Suspect]
     Dosage: TOTAL NUMBER OF INFUSIONS RECEIVED: 2
     Route: 042
  3. HYDROCORTISONE [Concomitant]
     Indication: PREMEDICATION
  4. AZATHIOPRINE [Concomitant]
     Indication: CROHN'S DISEASE

REACTIONS (10)
  - FACE OEDEMA [None]
  - PALPITATIONS [None]
  - PYREXIA [None]
  - RASH [None]
  - FLUSHING [None]
  - HYPOTENSION [None]
  - DYSPNOEA [None]
  - INFUSION RELATED REACTION [None]
  - TACHYCARDIA [None]
  - MALAISE [None]
